FAERS Safety Report 18461925 (Version 1)
Quarter: 2020Q4

REPORT INFORMATION
  Report Type: Spontaneous
  Country: US (occurrence: US)
  Receive Date: 20201104
  Receipt Date: 20201104
  Transmission Date: 20210114
  Serious: Yes (Other)
  Sender: FDA-Public Use
  Company Number: US-BRECKENRIDGE PHARMACEUTICAL, INC.-2093582

PATIENT
  Age: 76 Year
  Sex: Female
  Weight: 70.46 kg

DRUGS (2)
  1. AZELASTINE HYDROCHLORIDE. [Suspect]
     Active Substance: AZELASTINE HYDROCHLORIDE
     Indication: PARANASAL SINUS HYPERSECRETION
     Route: 045
  2. ASPIRIN. [Suspect]
     Active Substance: ASPIRIN
     Route: 048

REACTIONS (7)
  - Ageusia [None]
  - Diarrhoea [None]
  - Haematochezia [None]
  - Decreased appetite [None]
  - Dysgeusia [None]
  - Abdominal pain upper [None]
  - Abnormal loss of weight [None]
